FAERS Safety Report 7691752-6 (Version None)
Quarter: 2011Q3

REPORT INFORMATION
  Report Type: 
  Country: None (occurrence: None)
  Receive Date: 20110818
  Receipt Date: 20110801
  Transmission Date: 20111222
  Serious: Yes (Hospitalization)
  Sender: FDA-Public Use
  Company Number: JP-GLAXOSMITHKLINE-B0737324A

PATIENT
  Sex: Female

DRUGS (8)
  1. LAMICTAL [Suspect]
     Dosage: 50MG PER DAY
     Route: 048
     Dates: start: 20110706, end: 20110719
  2. LAMICTAL [Suspect]
     Route: 048
     Dates: start: 20110720, end: 20110725
  3. DEPAS [Concomitant]
     Indication: INSOMNIA
     Dosage: .5MG PER DAY
     Route: 048
     Dates: start: 20101108, end: 20110726
  4. LITHIUM CARBONATE [Concomitant]
     Indication: BIPOLAR DISORDER
     Dosage: 600MG PER DAY
     Route: 048
     Dates: start: 20110304, end: 20110726
  5. ABILIFY [Concomitant]
     Route: 048
  6. DORAL [Concomitant]
     Route: 048
  7. LAMICTAL [Suspect]
     Indication: BIPOLAR DISORDER
     Dosage: 25MG PER DAY
     Route: 048
     Dates: start: 20110626, end: 20110705
  8. ZOLPIDEM [Concomitant]
     Route: 048

REACTIONS (2)
  - DRUG ERUPTION [None]
  - PYREXIA [None]
